FAERS Safety Report 16577211 (Version 1)
Quarter: 2019Q3

REPORT INFORMATION
  Report Type: Spontaneous
  Country: US (occurrence: US)
  Receive Date: 20190716
  Receipt Date: 20190716
  Transmission Date: 20191004
  Serious: Yes (Other)
  Sender: FDA-Public Use
  Company Number: US-AMGEN-USASP2019109669

PATIENT
  Age: 75 Year
  Sex: Female
  Weight: 49.89 kg

DRUGS (3)
  1. IBRANCE [Concomitant]
     Active Substance: PALBOCICLIB
     Indication: BREAST CANCER
  2. XGEVA [Suspect]
     Active Substance: DENOSUMAB
     Indication: BREAST CANCER STAGE IV
     Dosage: UNK UNK, Q4WK
     Route: 065
     Dates: start: 2018
  3. LETROZOLE. [Concomitant]
     Active Substance: LETROZOLE
     Indication: BREAST CANCER

REACTIONS (4)
  - Wisdom teeth removal [Unknown]
  - Abdominal distension [Unknown]
  - Back pain [Unknown]
  - Hip arthroplasty [Unknown]
